FAERS Safety Report 16359867 (Version 6)
Quarter: 2020Q4

REPORT INFORMATION
  Report Type: Spontaneous
  Country: US (occurrence: US)
  Receive Date: 20190528
  Receipt Date: 20201102
  Transmission Date: 20210113
  Serious: Yes (Other)
  Sender: FDA-Public Use
  Company Number: US-GILEAD-2019-0409397

PATIENT
  Age: 48 Year
  Sex: Male
  Weight: 83.9 kg

DRUGS (24)
  1. AMPICILLIN [Concomitant]
     Active Substance: AMPICILLIN
  2. PENICILLIN B [Concomitant]
     Active Substance: PHENETICILLIN
  3. BIKTARVY [Concomitant]
     Active Substance: BICTEGRAVIR SODIUM\EMTRICITABINE\TENOFOVIR ALAFENAMIDE FUMARATE
  4. RAMIPRIL. [Concomitant]
     Active Substance: RAMIPRIL
     Indication: HYPERTENSION
     Dosage: UNK
     Route: 048
     Dates: start: 2010, end: 2010
  5. TYLENOL [Concomitant]
     Active Substance: ACETAMINOPHEN
     Route: 048
  6. ACYCLOVIR AKRI [Concomitant]
     Route: 048
  7. AMOXICILLIN. [Concomitant]
     Active Substance: AMOXICILLIN
  8. PREDNISOLONE. [Concomitant]
     Active Substance: PREDNISOLONE
  9. PREDNISONE. [Concomitant]
     Active Substance: PREDNISONE
  10. COMBIVIR [Concomitant]
     Active Substance: LAMIVUDINE\ZIDOVUDINE
  11. SUSTIVA [Concomitant]
     Active Substance: EFAVIRENZ
  12. ASPIRIN (E.C.) [Concomitant]
     Active Substance: ASPIRIN
  13. CORTISONE [Concomitant]
     Active Substance: CORTISONE
  14. WARFARIN [Concomitant]
     Active Substance: WARFARIN
  15. BACTRIM [Concomitant]
     Active Substance: SULFAMETHOXAZOLE\TRIMETHOPRIM
  16. HEPARIN [Concomitant]
     Active Substance: HEPARIN SODIUM
  17. TRIUMEQ [Concomitant]
     Active Substance: ABACAVIR SULFATE\DOLUTEGRAVIR SODIUM\LAMIVUDINE
  18. DEPAKOTE [Concomitant]
     Active Substance: DIVALPROEX SODIUM
  19. TETRACYCLINE [Concomitant]
     Active Substance: TETRACYCLINE
  20. TRIAMCINOLONE [Concomitant]
     Active Substance: TRIAMCINOLONE
  21. TRUVADA [Suspect]
     Active Substance: EMTRICITABINE\TENOFOVIR DISOPROXIL FUMARATE
     Indication: HIV INFECTION
     Dosage: UNK
     Route: 048
     Dates: start: 200901, end: 201001
  22. ANTACID C [Concomitant]
     Active Substance: MAGNESIUM OXIDE\SODIUM BICARBONATE
  23. EPIVIR [Concomitant]
     Active Substance: LAMIVUDINE
  24. EPZICOM [Concomitant]
     Active Substance: ABACAVIR SULFATE\LAMIVUDINE

REACTIONS (9)
  - Anxiety [Not Recovered/Not Resolved]
  - Pain [Not Recovered/Not Resolved]
  - Nightmare [Not Recovered/Not Resolved]
  - Suicidal ideation [Not Recovered/Not Resolved]
  - Anhedonia [Not Recovered/Not Resolved]
  - Depression [Not Recovered/Not Resolved]
  - Chronic kidney disease [Not Recovered/Not Resolved]
  - Emotional distress [Not Recovered/Not Resolved]
  - Economic problem [Not Recovered/Not Resolved]

NARRATIVE: CASE EVENT DATE: 200901
